FAERS Safety Report 7412951-4 (Version None)
Quarter: 2011Q2

REPORT INFORMATION
  Report Type: 
  Country: None (occurrence: None)
  Receive Date: 20110408
  Receipt Date: 20110408
  Transmission Date: 20111010
  Serious: Yes (Other)
  Sender: FDA-Public Use
  Company Number: None

PATIENT
  Age: 64 Year
  Sex: Female
  Weight: 112.9457 kg

DRUGS (1)
  1. CLONIDINE [Suspect]
     Dosage: 0.1 MG

REACTIONS (6)
  - BLOOD PRESSURE INADEQUATELY CONTROLLED [None]
  - DYSPNOEA [None]
  - HEADACHE [None]
  - DIZZINESS [None]
  - RASH [None]
  - VISION BLURRED [None]
